FAERS Safety Report 10920534 (Version 2)
Quarter: 2015Q2

REPORT INFORMATION
  Report Type: Report from Study
  Country: FR (occurrence: FR)
  Receive Date: 20150317
  Receipt Date: 20150404
  Transmission Date: 20150821
  Serious: Yes (Death, Other)
  Sender: FDA-Public Use
  Company Number: PHHY2015FR030448

PATIENT
  Age: 46 Year
  Sex: Male

DRUGS (1)
  1. LDK378 [Suspect]
     Active Substance: CERITINIB
     Indication: NON-SMALL CELL LUNG CANCER
     Dosage: 750 MG, QD
     Route: 048
     Dates: end: 20150310

REACTIONS (6)
  - Skin injury [Recovered/Resolved]
  - Brain oedema [Unknown]
  - Malignant neoplasm progression [Fatal]
  - Non-small cell lung cancer [Fatal]
  - Histiocytosis haematophagic [Unknown]
  - Lymphopenia [Unknown]

NARRATIVE: CASE EVENT DATE: 20150309
